FAERS Safety Report 11231684 (Version 1)
Quarter: 2015Q2

REPORT INFORMATION
  Report Type: Spontaneous
  Country: US (occurrence: None)
  Receive Date: 20150630
  Receipt Date: 20150630
  Transmission Date: 20150821
  Serious: Yes (Hospitalization)
  Sender: FDA-Public Use
  Company Number: None

PATIENT
  Age: 76 Year
  Sex: Female
  Weight: 86.64 kg

DRUGS (18)
  1. APIXABAN [Concomitant]
     Active Substance: APIXABAN
  2. COLACE [Concomitant]
     Active Substance: DOCUSATE SODIUM
  3. FISH OIL [Concomitant]
     Active Substance: FISH OIL
  4. ZOFRAN [Concomitant]
     Active Substance: ONDANSETRON HYDROCHLORIDE
  5. FLUTICASONE [Concomitant]
     Active Substance: FLUTICASONE\FLUTICASONE PROPIONATE
  6. LASIX [Concomitant]
     Active Substance: FUROSEMIDE
  7. OXYCODONE [Concomitant]
     Active Substance: OXYCODONE
  8. TRIAMCINOLONE [Concomitant]
     Active Substance: TRIAMCINOLONE
  9. BENDAMUSTINE HYDROCHLORIDE [Suspect]
     Active Substance: BENDAMUSTINE HYDROCHLORIDE
     Dates: end: 20150529
  10. LIDOCAINE PATCH [Concomitant]
     Active Substance: LIDOCAINE
  11. PROMETHAZINE [Concomitant]
     Active Substance: PROMETHAZINE\PROMETHAZINE HYDROCHLORIDE
  12. COREG [Concomitant]
     Active Substance: CARVEDILOL
  13. VITAMIN E [Concomitant]
     Active Substance: .ALPHA.-TOCOPHEROL
  14. XANAX [Concomitant]
     Active Substance: ALPRAZOLAM
  15. ATORVASTATIN [Concomitant]
     Active Substance: ATORVASTATIN
  16. CENTRUM ADULTS [Concomitant]
  17. ZYRTEC [Concomitant]
     Active Substance: CETIRIZINE HYDROCHLORIDE
  18. LISINOPRIL. [Concomitant]
     Active Substance: LISINOPRIL

REACTIONS (6)
  - Asthenia [None]
  - Nausea [None]
  - Abdominal pain [None]
  - Fatigue [None]
  - Decreased appetite [None]
  - Acute kidney injury [None]

NARRATIVE: CASE EVENT DATE: 20150625
